FAERS Safety Report 23145924 (Version 1)
Quarter: 2023Q4

REPORT INFORMATION
  Report Type: Spontaneous
  Country: RU (occurrence: RU)
  Receive Date: 20231104
  Receipt Date: 20231104
  Transmission Date: 20240109
  Serious: Yes (Other)
  Sender: FDA-Public Use
  Company Number: RU-CHIESI-2023CHF05736

PATIENT
  Age: 17 Year
  Sex: Male

DRUGS (1)
  1. LAMZEDE [Suspect]
     Active Substance: VELMANASE ALFA-TYCV
     Indication: Alpha-mannosidosis
     Dosage: UNK
     Route: 042

REACTIONS (2)
  - Papule [Recovered/Resolved]
  - Infusion related reaction [Recovered/Resolved]
